FAERS Safety Report 12430949 (Version 2)
Quarter: 2016Q2

REPORT INFORMATION
  Report Type: Spontaneous
  Country: CN (occurrence: CN)
  Receive Date: 20160602
  Receipt Date: 20160630
  Transmission Date: 20160815
  Serious: Yes (Other)
  Sender: FDA-Public Use
  Company Number: CN-JNJFOC-20160526786

PATIENT

DRUGS (2)
  1. IBUPROFEN. [Suspect]
     Active Substance: IBUPROFEN
     Indication: PRODUCT USED FOR UNKNOWN INDICATION
     Dosage: ADULT:15 ML-20 ML TID;
     Route: 048
  2. IBUPROFEN. [Suspect]
     Active Substance: IBUPROFEN
     Route: 048

REACTIONS (5)
  - Anaphylactic shock [Recovered/Resolved]
  - Granulocytopenia [Recovered/Resolved]
  - Febrile convulsion [Recovered/Resolved]
  - Drug eruption [Recovered/Resolved]
  - Gastrointestinal haemorrhage [Recovered/Resolved]
